FAERS Safety Report 12892329 (Version 1)
Quarter: 2016Q4

REPORT INFORMATION
  Report Type: Spontaneous
  Country: None (occurrence: US)
  Receive Date: 20161027
  Receipt Date: 20161027
  Transmission Date: 20170207
  Serious: No
  Sender: FDA-Public Use
  Company Number: None

PATIENT
  Age: 86 Year
  Sex: Female
  Weight: 75.5 kg

DRUGS (1)
  1. HEPARIN 10,000 UNITS/10ML FRESENIUS KABI [Suspect]
     Active Substance: HEPARIN SODIUM
     Indication: CATHETERISATION CARDIAC
     Dosage: 7,000 UNITS 0949 IV?2,000 UNITS 1003 IV?2,000 UNITS 1030 IV
     Route: 042
     Dates: start: 19651010, end: 20161010

REACTIONS (2)
  - Atrial thrombosis [None]
  - Coagulation time shortened [None]

NARRATIVE: CASE EVENT DATE: 20161010
